FAERS Safety Report 21348147 (Version 1)
Quarter: 2022Q3

REPORT INFORMATION
  Report Type: Spontaneous
  Country: US (occurrence: None)
  Receive Date: 20220916
  Receipt Date: 20220916
  Transmission Date: 20221027
  Serious: No
  Sender: FDA-Public Use
  Company Number: None

PATIENT
  Age: 70 Year
  Sex: Female

DRUGS (1)
  1. ENOXAPARIN [Suspect]
     Active Substance: ENOXAPARIN
     Dosage: FREQUENCY : TWICE A DAY;?
     Route: 058
     Dates: start: 202207

REACTIONS (2)
  - Thrombosis [None]
  - Haematoma [None]

NARRATIVE: CASE EVENT DATE: 20220902
